FAERS Safety Report 15534868 (Version 1)
Quarter: 2018Q4

REPORT INFORMATION
  Report Type: Spontaneous
  Country: FR (occurrence: FR)
  Receive Date: 20181022
  Receipt Date: 20181022
  Transmission Date: 20190205
  Serious: Yes (Hospitalization)
  Sender: FDA-Public Use
  Company Number: FR-BIOVITRUM-2018FR1213

PATIENT
  Age: 80 Year
  Sex: Male
  Weight: 56 kg

DRUGS (4)
  1. PARACETAMOL [Suspect]
     Active Substance: ACETAMINOPHEN
     Indication: PAIN
     Route: 048
  2. ZYLORIC [Suspect]
     Active Substance: ALLOPURINOL
     Indication: GOUT
     Route: 048
  3. KINERET [Suspect]
     Active Substance: ANAKINRA
     Indication: ERDHEIM-CHESTER DISEASE
     Route: 058
     Dates: start: 20180125, end: 20180909
  4. LANSOPRAZOLE MYLAN [Suspect]
     Active Substance: LANSOPRAZOLE
     Route: 048

REACTIONS (5)
  - Hepatocellular injury [Not Recovered/Not Resolved]
  - Cholestasis [Not Recovered/Not Resolved]
  - Off label use [Unknown]
  - Jaundice [Not Recovered/Not Resolved]
  - Condition aggravated [Not Recovered/Not Resolved]

NARRATIVE: CASE EVENT DATE: 201808
